FAERS Safety Report 19950328 (Version 1)
Quarter: 2021Q4

REPORT INFORMATION
  Report Type: Spontaneous
  Country: US (occurrence: US)
  Receive Date: 20211013
  Receipt Date: 20211013
  Transmission Date: 20220303
  Serious: No
  Sender: FDA-Public Use
  Company Number: US-AVEO ONCOLOGY-2021-AVEO-US003494

PATIENT

DRUGS (2)
  1. FOTIVDA [Suspect]
     Active Substance: TIVOZANIB HYDROCHLORIDE
     Indication: Renal cell carcinoma
     Dosage: .89 MG, CYCLIC 21 DAYS OFF AND 7
     Route: 048
     Dates: start: 20210704
  2. ZYPREXA [Concomitant]
     Active Substance: OLANZAPINE

REACTIONS (2)
  - Fatigue [Unknown]
  - Decreased appetite [Unknown]
